FAERS Safety Report 4301328-6 (Version None)
Quarter: 2004Q1

REPORT INFORMATION
  Report Type: 
  Country: None (occurrence: None)
  Receive Date: 20040219
  Receipt Date: 20040204
  Transmission Date: 20041129
  Serious: Yes (Other)
  Sender: FDA-Public Use
  Company Number: 2004-UK-00122UK

PATIENT
  Age: 61 Year
  Sex: Female

DRUGS (11)
  1. TIOTROPIUM (00015/0190/A) (TIOTROPIUM BROMIDE) (NR) [Suspect]
     Indication: CHRONIC OBSTRUCTIVE AIRWAYS DISEASE
     Dosage: 1 ANZ
     Dates: start: 20040120, end: 20040123
  2. CONJUGATED OESTROGENS [Concomitant]
  3. PREDNISOLONE [Concomitant]
  4. IPRATROPIUM BROMIDE [Concomitant]
  5. SALBUTAMOL (SALBUTAMOL) (SALBUTAMOL SULPHATE) [Concomitant]
  6. LISINOPRIL [Concomitant]
  7. GABAPENTIN [Concomitant]
  8. AMITRIPTYLINE HYDROCHLORIDE [Concomitant]
  9. CEFACLOR [Concomitant]
  10. CO-CODAMOL (PANADEINE CO) [Concomitant]
  11. SERETIDE [Concomitant]

REACTIONS (1)
  - SWOLLEN TONGUE [None]
